FAERS Safety Report 8120898-3 (Version None)
Quarter: 2012Q1

REPORT INFORMATION
  Report Type: 
  Country: None (occurrence: None)
  Receive Date: 20120208
  Receipt Date: 20120201
  Transmission Date: 20120608
  Serious: Yes (Death)
  Sender: FDA-Public Use
  Company Number: US-ELI_LILLY_AND_COMPANY-US201202000364

PATIENT
  Sex: Female

DRUGS (7)
  1. THYROID THERAPY [Concomitant]
     Indication: THYROID DISORDER
     Dosage: UNK
     Dates: end: 20120101
  2. MORPHINE [Concomitant]
     Dosage: UNK
     Dates: end: 20120101
  3. ANTIHYPERTENSIVES [Concomitant]
     Indication: HYPERTENSION
     Dosage: UNK
     Dates: end: 20120101
  4. ZYPREXA [Suspect]
     Dosage: 7.5 MG, QD
     Dates: start: 20120101, end: 20120101
  5. LORAZEPAM [Concomitant]
     Dosage: UNK
     Dates: end: 20120101
  6. HALDOL [Concomitant]
     Dosage: UNK
     Dates: end: 20120101
  7. ZYPREXA [Suspect]
     Indication: BIPOLAR DISORDER
     Dosage: 7.5 MG, QD
     Dates: end: 20120101

REACTIONS (7)
  - INTENTIONAL DRUG MISUSE [None]
  - PNEUMONIA [None]
  - TENSION [None]
  - DYSPHAGIA [None]
  - APATHY [None]
  - WRONG TECHNIQUE IN DRUG USAGE PROCESS [None]
  - TREMOR [None]
